FAERS Safety Report 20713728 (Version 2)
Quarter: 2022Q2

REPORT INFORMATION
  Report Type: Spontaneous
  Country: US (occurrence: US)
  Receive Date: 20220415
  Receipt Date: 20220422
  Transmission Date: 20220721
  Serious: Yes (Life-Threatening, Hospitalization)
  Sender: FDA-Public Use
  Company Number: US-MYLANLABS-2022M1026065

PATIENT
  Age: 47 Year
  Sex: Female

DRUGS (7)
  1. ACETAMINOPHEN [Suspect]
     Active Substance: ACETAMINOPHEN
     Indication: Toothache
     Dosage: 1 GRAM, Q4H, FOR 2 TO 3 DAYS
     Route: 065
  2. FOMEPIZOLE [Suspect]
     Active Substance: FOMEPIZOLE
     Indication: Overdose
     Dosage: 15 MILLIGRAM/KILOGRAM, OVER 30 MIN
     Route: 065
  3. FOMEPIZOLE [Suspect]
     Active Substance: FOMEPIZOLE
     Dosage: UNK, REPEAT DOSE 4 H AFTER CRRT
     Route: 065
  4. FOMEPIZOLE [Suspect]
     Active Substance: FOMEPIZOLE
     Dosage: UNK, ADDITIONAL DOSE OF FOMEPIZOLE AT HOUR 57
     Route: 065
  5. FOMEPIZOLE [Suspect]
     Active Substance: FOMEPIZOLE
     Dosage: UNK, FINAL DOSE AT HOUR 70.
     Route: 065
  6. ACETYLCYSTEINE [Concomitant]
     Active Substance: ACETYLCYSTEINE
     Indication: Overdose
     Dosage: 150 MILLIGRAM/KILOGRAM, LOADING DOSE OVER 1 H
     Route: 042
  7. ACETYLCYSTEINE [Concomitant]
     Active Substance: ACETYLCYSTEINE
     Dosage: 12.5 MILLIGRAM/KILOGRAM, QH
     Route: 042

REACTIONS (5)
  - Acute kidney injury [Recovered/Resolved]
  - Overdose [Recovered/Resolved]
  - Hypotension [Recovered/Resolved]
  - Hypoglycaemia [Recovered/Resolved]
  - Off label use [Unknown]
